FAERS Safety Report 4376001-9 (Version None)
Quarter: 2004Q2

REPORT INFORMATION
  Report Type: 
  Country: None (occurrence: None)
  Receive Date: 20040609
  Receipt Date: 20040609
  Transmission Date: 20050107
  Serious: Yes (Other)
  Sender: FDA-Public Use
  Company Number: None

PATIENT
  Age: 45 Year
  Sex: Female
  Weight: 54.4316 kg

DRUGS (2)
  1. FLAGYL [Suspect]
     Indication: VAGINITIS BACTERIAL
     Dates: start: 20020101, end: 20020110
  2. CALARIOL HAIR DYE [Suspect]

REACTIONS (2)
  - HYPOAESTHESIA [None]
  - PARAESTHESIA [None]
